FAERS Safety Report 22646695 (Version 1)
Quarter: 2023Q2

REPORT INFORMATION
  Report Type: Spontaneous
  Country: DE (occurrence: DE)
  Receive Date: 20230627
  Receipt Date: 20230627
  Transmission Date: 20230721
  Serious: Yes (Other)
  Sender: FDA-Public Use
  Company Number: None

PATIENT
  Age: 35 Year
  Sex: Female
  Weight: 56 kg

DRUGS (1)
  1. MIRTAZAPINE [Suspect]
     Active Substance: MIRTAZAPINE
     Indication: Anxiety
     Dosage: 7.5 MILLIGRAM
     Route: 048
     Dates: start: 20221015, end: 20230524

REACTIONS (12)
  - Suicidal ideation [Not Recovered/Not Resolved]
  - Loss of personal independence in daily activities [Unknown]
  - Mental disorder [Unknown]
  - Restlessness [Not Recovered/Not Resolved]
  - Decreased appetite [Unknown]
  - Asthenia [Unknown]
  - Withdrawal syndrome [Not Recovered/Not Resolved]
  - Anxiety [Not Recovered/Not Resolved]
  - Diarrhoea [Unknown]
  - Nausea [Unknown]
  - Home care [Unknown]
  - Product communication issue [Unknown]

NARRATIVE: CASE EVENT DATE: 20221030
